FAERS Safety Report 8560624-7 (Version None)
Quarter: 2012Q3

REPORT INFORMATION
  Report Type: 
  Country: None (occurrence: None)
  Receive Date: 20120802
  Receipt Date: 20100921
  Transmission Date: 20120928
  Serious: Yes (Hospitalization, Other)
  Sender: FDA-Public Use
  Company Number: US-BAYER-200939394NA

PATIENT
  Age: 36 Year
  Sex: Female
  Weight: 75.909 kg

DRUGS (4)
  1. EXCEDRIN (MIGRAINE) [Concomitant]
     Indication: HEADACHE
  2. YAZ [Suspect]
     Route: 048
     Dates: start: 20081201, end: 20090223
  3. YASMIN [Suspect]
     Route: 048
     Dates: start: 20081201
  4. YAZ [Suspect]
     Dosage: UNK
     Dates: start: 20090116, end: 20090221

REACTIONS (4)
  - PULMONARY EMBOLISM [None]
  - TRAUMATIC LUNG INJURY [None]
  - DYSPNOEA EXERTIONAL [None]
  - PULMONARY FIBROSIS [None]
